FAERS Safety Report 25354288 (Version 1)
Quarter: 2025Q2

REPORT INFORMATION
  Report Type: Spontaneous
  Country: US (occurrence: US)
  Receive Date: 20250523
  Receipt Date: 20250523
  Transmission Date: 20250716
  Serious: No
  Sender: Kenvue
  Company Number: US-KENVUE-20250500046

PATIENT
  Sex: Female

DRUGS (10)
  1. BENADRYL [Suspect]
     Active Substance: DIPHENHYDRAMINE HYDROCHLORIDE
     Indication: Dizziness
     Route: 065
     Dates: start: 2025
  2. BENADRYL [Suspect]
     Active Substance: DIPHENHYDRAMINE HYDROCHLORIDE
     Indication: Dyspnoea
  3. BENADRYL [Suspect]
     Active Substance: DIPHENHYDRAMINE HYDROCHLORIDE
     Indication: Pruritus
  4. PEPCID [Suspect]
     Active Substance: FAMOTIDINE
     Indication: Dizziness
     Route: 065
     Dates: start: 2025
  5. PEPCID [Suspect]
     Active Substance: FAMOTIDINE
     Indication: Dyspnoea
  6. PEPCID [Suspect]
     Active Substance: FAMOTIDINE
     Indication: Pruritus
  7. AVEENO SKIN RELIEF BODY WASH UNSPECIFIED [Concomitant]
     Indication: Removal of inert matter from skin or subcutaneous tissue
     Route: 061
     Dates: start: 202501, end: 2025
  8. ALLEGRA [Concomitant]
     Active Substance: FEXOFENADINE HYDROCHLORIDE
     Indication: Dizziness
     Route: 065
     Dates: start: 2025
  9. ALLEGRA [Concomitant]
     Active Substance: FEXOFENADINE HYDROCHLORIDE
     Indication: Dyspnoea
  10. ALLEGRA [Concomitant]
     Active Substance: FEXOFENADINE HYDROCHLORIDE
     Indication: Pruritus

REACTIONS (2)
  - Product use in unapproved indication [Unknown]
  - Therapeutic response unexpected [Unknown]

NARRATIVE: CASE EVENT DATE: 20250101
